FAERS Safety Report 5581909-2 (Version None)
Quarter: 2008Q1

REPORT INFORMATION
  Report Type: 
  Country: None (occurrence: None)
  Receive Date: 20080104
  Receipt Date: 20071225
  Transmission Date: 20080703
  Serious: Yes (Other)
  Sender: FDA-Public Use
  Company Number: JP-PFIZER INC-2008000352

PATIENT
  Age: 64 Year
  Sex: Female

DRUGS (5)
  1. ZITHROMAX [Suspect]
     Indication: PRODUCTIVE COUGH
     Dosage: DAILY DOSE:500MG
     Route: 048
     Dates: start: 20071218, end: 20071220
  2. ZITHROMAX [Suspect]
     Indication: PHARYNGOLARYNGEAL PAIN
  3. BRUFEN [Suspect]
     Dosage: DAILY DOSE:200MG
     Route: 048
  4. MUCODYNE [Suspect]
     Dosage: DAILY DOSE:500MG
     Route: 048
  5. HUSCODE [Suspect]
     Route: 048

REACTIONS (2)
  - PURPURA [None]
  - VOMITING [None]
